FAERS Safety Report 7471784-3 (Version None)
Quarter: 2011Q2

REPORT INFORMATION
  Report Type: 
  Country: None (occurrence: None)
  Receive Date: 20110511
  Receipt Date: 20100422
  Transmission Date: 20111010
  Serious: No
  Sender: FDA-Public Use
  Company Number: A0857075A

PATIENT
  Age: 60 Year
  Sex: Female

DRUGS (1)
  1. TYKERB [Suspect]
     Dosage: 1000MGD PER DAY
     Route: 048
     Dates: start: 20100421

REACTIONS (1)
  - DIARRHOEA [None]
